FAERS Safety Report 5343405-7 (Version None)
Quarter: 2007Q2

REPORT INFORMATION
  Report Type: 
  Country: None (occurrence: None)
  Receive Date: 20070531
  Receipt Date: 20070517
  Transmission Date: 20071010
  Serious: Yes (Other)
  Sender: FDA-Public Use
  Company Number: GXKR2007GB02382

PATIENT
  Age: 75 Year
  Sex: Male

DRUGS (4)
  1. GABAPENTIN [Suspect]
     Indication: NEURALGIA
     Dosage: 200 MG, TID
  2. CARBIDOPA [Concomitant]
  3. LEVODOPA [Concomitant]
  4. ENTACAPONE [Concomitant]

REACTIONS (2)
  - CHOREOATHETOSIS [None]
  - DYSKINESIA [None]
